FAERS Safety Report 5000083-4 (Version None)
Quarter: 2006Q2

REPORT INFORMATION
  Report Type: 
  Country: None (occurrence: None)
  Receive Date: 20060511
  Receipt Date: 20060502
  Transmission Date: 20061013
  Serious: Yes (Other)
  Sender: FDA-Public Use
  Company Number: 2006UW08217

PATIENT
  Age: 47 Year
  Sex: Female
  Weight: 109.1 kg

DRUGS (9)
  1. SEROQUEL [Suspect]
     Indication: INSOMNIA
     Route: 048
  2. PEG-INTRON [Suspect]
     Indication: HEPATITIS C
     Dates: start: 20010101, end: 20020101
  3. PEG-INTRON [Suspect]
     Dates: start: 20051230
  4. REBETOL [Suspect]
     Indication: HEPATITIS C
     Route: 048
     Dates: start: 20010101, end: 20020101
  5. REBETOL [Suspect]
     Route: 048
     Dates: start: 20051230
  6. COUMADIN [Concomitant]
     Route: 048
  7. PREVACID [Concomitant]
     Route: 048
  8. TOPROL-XL [Concomitant]
     Route: 048
  9. VALIUM [Concomitant]
     Route: 048

REACTIONS (7)
  - ARTHRITIS [None]
  - ERYTHEMA [None]
  - HAEMATEMESIS [None]
  - LOSS OF CONSCIOUSNESS [None]
  - NEUROPATHY PERIPHERAL [None]
  - NIGHT SWEATS [None]
  - OEDEMA PERIPHERAL [None]
